FAERS Safety Report 12094975 (Version 1)
Quarter: 2016Q1

REPORT INFORMATION
  Report Type: Spontaneous
  Country: CH (occurrence: CH)
  Receive Date: 20160219
  Receipt Date: 20160219
  Transmission Date: 20160526
  Serious: No
  Sender: FDA-Public Use
  Company Number: CH-PERNIX THERAPEUTICS-2015PT000277

PATIENT
  Age: 23 Year
  Sex: Female

DRUGS (8)
  1. CEDAX [Suspect]
     Active Substance: CEFTIBUTEN DIHYDRATE
     Indication: ESCHERICHIA INFECTION
     Dosage: 400 MG, ONCE DAILY
     Route: 048
     Dates: start: 201411, end: 2014
  2. BACTRIM [Concomitant]
     Active Substance: SULFAMETHOXAZOLE\TRIMETHOPRIM
  3. AMOXICILLIN. [Concomitant]
     Active Substance: AMOXICILLIN
  4. CEDAX [Suspect]
     Active Substance: CEFTIBUTEN DIHYDRATE
     Indication: URINARY TRACT INFECTION
     Dosage: 400 MG, ONCE DAILY
     Route: 048
     Dates: start: 20150212, end: 20150218
  5. ELEVIT                             /07499601/ [Concomitant]
  6. AMOXICILLIN AND CLAVULANATE POTASSIUM [Concomitant]
     Active Substance: AMOXICILLIN\CLAVULANATE POTASSIUM
  7. GYNO-TARDYFERON [Concomitant]
  8. FOLIC ACID. [Concomitant]
     Active Substance: FOLIC ACID

REACTIONS (1)
  - Maternal exposure during pregnancy [Recovered/Resolved]

NARRATIVE: CASE EVENT DATE: 201411
